FAERS Safety Report 4863861-8 (Version None)
Quarter: 2005Q4

REPORT INFORMATION
  Report Type: 
  Country: None (occurrence: None)
  Receive Date: 20051222
  Receipt Date: 20051024
  Transmission Date: 20060501
  Serious: No
  Sender: FDA-Public Use
  Company Number: US-GLAXOSMITHKLINE-A0579413A

PATIENT
  Sex: Male

DRUGS (5)
  1. FLONASE [Suspect]
     Indication: DRUG USE FOR UNKNOWN INDICATION
     Dosage: 4SPR PER DAY
     Route: 045
     Dates: start: 20030101
  2. IMITREX [Suspect]
     Indication: MIGRAINE
     Route: 058
  3. IMITREX [Suspect]
     Dosage: 50MG AS REQUIRED
     Route: 048
  4. AYR [Concomitant]
     Route: 045
  5. PAIN MEDICATION [Concomitant]

REACTIONS (3)
  - DRUG INEFFECTIVE [None]
  - NASAL DRYNESS [None]
  - SOMNOLENCE [None]
